FAERS Safety Report 12670879 (Version 1)
Quarter: 2016Q3

REPORT INFORMATION
  Report Type: Spontaneous
  Country: US (occurrence: US)
  Receive Date: 20160822
  Receipt Date: 20160822
  Transmission Date: 20161109
  Serious: No
  Sender: FDA-Public Use
  Company Number: US-JAZZ-2016-US-006335

PATIENT
  Sex: Female

DRUGS (25)
  1. XYREM [Suspect]
     Active Substance: SODIUM OXYBATE
     Indication: NARCOLEPSY
     Dosage: 2.25 G, BID
     Route: 048
     Dates: start: 201512, end: 201512
  2. SPIRONOLACTONE. [Concomitant]
     Active Substance: SPIRONOLACTONE
  3. NUVIGIL [Concomitant]
     Active Substance: ARMODAFINIL
  4. TYLENOL EXTRA STRENGTH [Concomitant]
     Active Substance: ACETAMINOPHEN
  5. COENZYME Q10 [Concomitant]
     Active Substance: UBIDECARENONE
  6. FISH OIL [Concomitant]
     Active Substance: FISH OIL
  7. RESTASIS [Concomitant]
     Active Substance: CYCLOSPORINE
  8. VITAMIN D [Concomitant]
     Active Substance: CHOLECALCIFEROL
  9. ADVIL [Concomitant]
     Active Substance: IBUPROFEN
  10. NUVIGIL [Concomitant]
     Active Substance: ARMODAFINIL
  11. ZOLPIDEM TARTRATE. [Concomitant]
     Active Substance: ZOLPIDEM TARTRATE
  12. XYREM [Suspect]
     Active Substance: SODIUM OXYBATE
     Dosage: 4.5 G, BID
     Route: 048
     Dates: start: 201601
  13. FENOFIBRATE. [Concomitant]
     Active Substance: FENOFIBRATE
  14. FUROSEMIDE. [Concomitant]
     Active Substance: FUROSEMIDE
  15. NAPROXEN. [Concomitant]
     Active Substance: NAPROXEN
  16. ASPIRIN. [Concomitant]
     Active Substance: ASPIRIN
  17. FLONASE [Concomitant]
     Active Substance: FLUTICASONE PROPIONATE
  18. NITROFURANTOIN. [Concomitant]
     Active Substance: NITROFURANTOIN
  19. ZETIA [Concomitant]
     Active Substance: EZETIMIBE
  20. EXCEDRIN MIGRAINE [Concomitant]
     Active Substance: ACETAMINOPHEN\ASPIRIN\CAFFEINE
  21. PINDOLOL. [Concomitant]
     Active Substance: PINDOLOL
  22. FLUOXETINE HCL [Concomitant]
     Active Substance: FLUOXETINE HYDROCHLORIDE
  23. XYREM [Suspect]
     Active Substance: SODIUM OXYBATE
     Dosage: DOSE ADJUSTMENTS
     Route: 048
     Dates: start: 201512, end: 201601
  24. POTASSIUM CL [Concomitant]
     Active Substance: POTASSIUM CHLORIDE
  25. PREDNISONE. [Concomitant]
     Active Substance: PREDNISONE

REACTIONS (1)
  - Sinus disorder [Not Recovered/Not Resolved]
